FAERS Safety Report 10749463 (Version 2)
Quarter: 2015Q1

REPORT INFORMATION
  Report Type: Report from Study
  Country: CA (occurrence: CA)
  Receive Date: 20150129
  Receipt Date: 20150206
  Transmission Date: 20150721
  Serious: Yes (Hospitalization)
  Sender: FDA-Public Use
  Company Number: PHHY2014CA143634

PATIENT
  Age: 45 Year
  Sex: Female

DRUGS (3)
  1. SANDOSTATIN LAR DEPOT [Suspect]
     Active Substance: OCTREOTIDE ACETATE
     Indication: POLYCYSTIC LIVER DISEASE
     Dosage: 40 MG, QMO
     Route: 030
     Dates: start: 20140710
  2. SANDOSTATIN LAR DEPOT [Suspect]
     Active Substance: OCTREOTIDE ACETATE
     Dosage: 40 MG, EVERY 28 DAYS
     Route: 030
  3. SANDOSTATIN LAR DEPOT [Suspect]
     Active Substance: OCTREOTIDE ACETATE
     Dosage: 30 MG, EVERY 4 WEEKS
     Route: 030

REACTIONS (13)
  - Cyst rupture [Recovered/Resolved]
  - Abdominal pain lower [Recovered/Resolved]
  - Dyspnoea [Unknown]
  - Product use issue [Unknown]
  - Hypoglycaemia [Unknown]
  - Vomiting [Recovered/Resolved]
  - Discomfort [Unknown]
  - Hot flush [Recovering/Resolving]
  - Dysphoria [Recovering/Resolving]
  - Nausea [Recovered/Resolved]
  - Dizziness [Recovering/Resolving]
  - Ascites [Unknown]
  - Hunger [Recovering/Resolving]

NARRATIVE: CASE EVENT DATE: 20140710
